FAERS Safety Report 5903996-1 (Version None)
Quarter: 2008Q3

REPORT INFORMATION
  Report Type: 
  Country: None (occurrence: None)
  Receive Date: 20080930
  Receipt Date: 20080915
  Transmission Date: 20090109
  Serious: Yes (Other)
  Sender: FDA-Public Use
  Company Number: US-GENENTECH-268778

PATIENT
  Age: 10 Year
  Sex: Female

DRUGS (14)
  1. RITUXAN [Suspect]
     Indication: JUVENILE ARTHRITIS
     Route: 065
  2. NAPROXEN [Suspect]
     Indication: JUVENILE ARTHRITIS
     Route: 065
  3. IBUPROFEN [Suspect]
     Indication: JUVENILE ARTHRITIS
     Route: 065
  4. CORTICOSTEROID NOS [Suspect]
     Indication: JUVENILE ARTHRITIS
     Route: 065
  5. METHOTREXATE [Suspect]
     Indication: JUVENILE ARTHRITIS
     Dosage: 0.8 MG/KG, UNK
     Route: 065
  6. ETANERCEPT [Suspect]
     Indication: JUVENILE ARTHRITIS
     Route: 065
  7. INFLIXIMAB [Suspect]
     Indication: JUVENILE ARTHRITIS
     Dosage: UNK
     Route: 065
  8. LEFLUNOMIDE [Suspect]
     Indication: JUVENILE ARTHRITIS
     Route: 065
  9. KINERET [Suspect]
     Indication: JUVENILE ARTHRITIS
     Route: 065
  10. CYCLOPHOSPHAMIDE [Suspect]
     Indication: JUVENILE ARTHRITIS
     Dosage: UNK
     Route: 042
  11. THALIDOMIDE [Suspect]
     Indication: JUVENILE ARTHRITIS
     Route: 065
  12. PREDNISONE [Suspect]
     Indication: JUVENILE ARTHRITIS
     Route: 065
  13. ADALIMUMAB [Suspect]
     Indication: JUVENILE ARTHRITIS
     Dosage: 1 MG/KG, 1/WEEK
     Route: 065
  14. METHADONE HCL [Suspect]
     Indication: JUVENILE ARTHRITIS
     Route: 065

REACTIONS (1)
  - HODGKIN'S DISEASE [None]
